FAERS Safety Report 9973877 (Version 1)
Quarter: 2014Q1

REPORT INFORMATION
  Report Type: Spontaneous
  Country: US (occurrence: US)
  Receive Date: 20140306
  Receipt Date: 20140306
  Transmission Date: 20141002
  Serious: No
  Sender: FDA-Public Use
  Company Number: US-MYLANLABS-2014S1001395

PATIENT
  Age: 40 Year
  Sex: Male
  Weight: 92.99 kg

DRUGS (1)
  1. RABEPRAZOLE SODIUM DELAYED-RELEASE TABLETS [Suspect]
     Indication: GASTROOESOPHAGEAL REFLUX DISEASE
     Route: 048
     Dates: start: 201401

REACTIONS (1)
  - Abdominal pain upper [Not Recovered/Not Resolved]
